FAERS Safety Report 5924601-4 (Version None)
Quarter: 2008Q4

REPORT INFORMATION
  Report Type: 
  Country: None (occurrence: None)
  Receive Date: 20081016
  Receipt Date: 20081006
  Transmission Date: 20090506
  Serious: Yes (Hospitalization)
  Sender: FDA-Public Use
  Company Number: 2008-03469

PATIENT
  Age: 61 Year
  Sex: Female
  Weight: 59.8 kg

DRUGS (4)
  1. VELCADE [Suspect]
     Indication: MULTIPLE MYELOMA
     Dosage: 1.3 MG/M2, INTRAVENOUS
     Route: 042
     Dates: start: 20080826, end: 20080912
  2. DOXORUBICIN HCL [Suspect]
     Indication: MULTIPLE MYELOMA
     Dosage: 20 MG/M2, INTRAVENOUS
     Route: 042
     Dates: start: 20080826, end: 20080909
  3. THALIDOMIDE [Suspect]
     Indication: MULTIPLE MYELOMA
     Dosage: 200 MG,ORAL
     Route: 048
     Dates: start: 20080826, end: 20080914
  4. VALSARTAN [Concomitant]

REACTIONS (12)
  - ASTHENIA [None]
  - CHILLS [None]
  - DERMATITIS ALLERGIC [None]
  - DIZZINESS [None]
  - FATIGUE [None]
  - NAUSEA [None]
  - RASH ERYTHEMATOUS [None]
  - RASH PRURITIC [None]
  - RED MAN SYNDROME [None]
  - SEPSIS [None]
  - TREMOR [None]
  - VOMITING [None]
